FAERS Safety Report 4318909-6 (Version None)
Quarter: 2004Q1

REPORT INFORMATION
  Report Type: 
  Country: None (occurrence: None)
  Receive Date: 20040315
  Receipt Date: 20040114
  Transmission Date: 20041129
  Serious: Yes (Hospitalization, Other)
  Sender: FDA-Public Use
  Company Number: 001-0902-M0100067

PATIENT
  Age: 33 Year
  Sex: Female
  Weight: 61.2356 kg

DRUGS (11)
  1. NARDIL [Suspect]
     Indication: AGORAPHOBIA
     Dosage: 30 MG (TWICE DAILY), ORAL
     Route: 048
     Dates: start: 19790101
  2. NARDIL [Suspect]
     Indication: DEPRESSION
     Dosage: 30 MG (TWICE DAILY), ORAL
     Route: 048
     Dates: start: 19790101
  3. NARDIL [Suspect]
     Indication: PAIN
     Dosage: 30 MG (TWICE DAILY), ORAL
     Route: 048
     Dates: start: 19790101
  4. NARDIL [Suspect]
     Indication: PANIC ATTACK
     Dosage: 30 MG (TWICE DAILY), ORAL
     Route: 048
     Dates: start: 19790101
  5. NARDIL [Suspect]
     Indication: SOCIAL PHOBIA
     Dosage: 30 MG (TWICE DAILY), ORAL
     Route: 048
     Dates: start: 19790101
  6. LORAZEPAM [Suspect]
     Indication: ANXIETY
     Dosage: (BID), ORAL
     Route: 048
  7. THEOPHYLLINE [Suspect]
     Indication: DYSPNOEA
  8. OTHER NUTRIENTS [Suspect]
     Indication: ILL-DEFINED DISORDER
  9. OTHER NUTRIENTS [Suspect]
     Indication: ILL-DEFINED DISORDER
  10. SILYMARIN (SILYMARIN) [Suspect]
     Indication: ILL-DEFINED DISORDER
  11. MULTIVITAMIN [Concomitant]

REACTIONS (32)
  - ALLERGY TO ANIMAL [None]
  - ASTHMA [None]
  - BRONCHITIS CHRONIC [None]
  - CELLULITIS STAPHYLOCOCCAL [None]
  - DEFORMITY [None]
  - DEPRESSION POSTOPERATIVE [None]
  - DIZZINESS [None]
  - DRUG WITHDRAWAL SYNDROME [None]
  - DYSARTHRIA [None]
  - DYSPEPSIA [None]
  - DYSPNOEA EXERTIONAL [None]
  - EXTRAPYRAMIDAL DISORDER [None]
  - FOOD CRAVING [None]
  - HAEMORRHAGE [None]
  - HEART RATE INCREASED [None]
  - HYPERTENSION [None]
  - HYPOGLYCAEMIA [None]
  - HYPOTENSION [None]
  - INSOMNIA [None]
  - JOINT EFFUSION [None]
  - LUNG INFECTION [None]
  - MANIA [None]
  - MEDICATION ERROR [None]
  - MULTIPLE ALLERGIES [None]
  - OBSESSIVE THOUGHTS [None]
  - OBSESSIVE-COMPULSIVE DISORDER [None]
  - PALPITATIONS [None]
  - PROCEDURAL COMPLICATION [None]
  - SUTURE RUPTURE [None]
  - THROAT TIGHTNESS [None]
  - TRANSIENT ISCHAEMIC ATTACK [None]
  - WEIGHT INCREASED [None]
